FAERS Safety Report 25221841 (Version 1)
Quarter: 2025Q2

REPORT INFORMATION
  Report Type: Spontaneous
  Country: US (occurrence: US)
  Receive Date: 20250421
  Receipt Date: 20250421
  Transmission Date: 20250716
  Serious: No
  Sender: SANOFI AVENTIS
  Company Number: US-SA-2025SA114385

PATIENT
  Sex: Male
  Weight: 122.45 kg

DRUGS (1)
  1. FABRAZYME [Suspect]
     Active Substance: AGALSIDASE BETA
     Indication: Fabry^s disease
     Dosage: 240 MG, QOW
     Route: 042
     Dates: start: 202111

REACTIONS (1)
  - Weight increased [Unknown]
